FAERS Safety Report 23928867 (Version 1)
Quarter: 2024Q2

REPORT INFORMATION
  Report Type: Spontaneous
  Country: US (occurrence: US)
  Receive Date: 20240531
  Receipt Date: 20240531
  Transmission Date: 20240716
  Serious: No
  Sender: FDA-Public Use
  Company Number: US-RADIUS HEALTH INC.-2024US000809

PATIENT
  Sex: Female

DRUGS (1)
  1. TYMLOS [Suspect]
     Active Substance: ABALOPARATIDE
     Indication: Product used for unknown indication
     Dosage: 80 MCG, DAILY
     Route: 058

REACTIONS (8)
  - Nasal congestion [Unknown]
  - Injection site mass [Unknown]
  - Injection site swelling [Recovering/Resolving]
  - Injection site bruising [Recovering/Resolving]
  - Nausea [Unknown]
  - Dizziness [Unknown]
  - Injection site pain [Unknown]
  - Wrong technique in product usage process [Unknown]
